FAERS Safety Report 4953763-0 (Version None)
Quarter: 2006Q1

REPORT INFORMATION
  Report Type: 
  Country: None (occurrence: None)
  Receive Date: 20060321
  Receipt Date: 20060307
  Transmission Date: 20060701
  Serious: Yes (Hospitalization)
  Sender: FDA-Public Use
  Company Number: 8013429

PATIENT
  Age: 69 Year
  Sex: Male

DRUGS (11)
  1. KEPPRA [Suspect]
     Indication: GRAND MAL CONVULSION
     Dosage: PO
     Route: 048
     Dates: start: 20050801, end: 20050901
  2. KEPPRA [Suspect]
     Indication: GRAND MAL CONVULSION
     Dosage: 2000 MG /D PO
     Route: 048
     Dates: start: 20050901, end: 20050901
  3. KEPPRA [Suspect]
     Indication: GRAND MAL CONVULSION
     Dosage: 250 MG 2 /D PO
     Route: 048
     Dates: start: 20050901
  4. LAMICTAL [Suspect]
     Dosage: PO
     Route: 048
     Dates: start: 20050701
  5. LAMICTAL [Suspect]
     Dosage: 200 MG 2 /D PO
     Route: 048
     Dates: start: 20050901
  6. DIOVAN [Suspect]
     Indication: HYPERTENSION
     Dosage: 80 MG /D PO
     Route: 048
     Dates: start: 20040101
  7. DIOVAN [Suspect]
     Indication: HYPERTENSION
     Dosage: 160 MG /D PO
     Route: 048
     Dates: start: 20050901
  8. TOPROL-XL [Concomitant]
  9. FUROSEMIDE [Concomitant]
  10. NITROGLYCERIN [Concomitant]
  11. DILANTIN [Concomitant]

REACTIONS (6)
  - AGGRESSION [None]
  - ASTHENIA [None]
  - CONFUSIONAL STATE [None]
  - DIZZINESS [None]
  - DYSPNOEA [None]
  - DYSSTASIA [None]
